FAERS Safety Report 5989526-7 (Version None)
Quarter: 2008Q4

REPORT INFORMATION
  Report Type: 
  Country: None (occurrence: None)
  Receive Date: 20081208
  Receipt Date: 20081126
  Transmission Date: 20090506
  Serious: Yes (Other)
  Sender: FDA-Public Use
  Company Number: 08H-163-0315243-00

PATIENT
  Age: 34 Year
  Sex: Female

DRUGS (1)
  1. DEXTROSE 5% [Suspect]
     Indication: DEHYDRATION
     Dosage: ONCE, INTRAVENOUS
     Route: 042
     Dates: start: 20081029

REACTIONS (4)
  - ANAPHYLACTIC REACTION [None]
  - CHEST DISCOMFORT [None]
  - CHEST PAIN [None]
  - DYSPNOEA [None]
